FAERS Safety Report 7727662-5 (Version None)
Quarter: 2011Q3

REPORT INFORMATION
  Report Type: 
  Country: None (occurrence: None)
  Receive Date: 20110902
  Receipt Date: 20110901
  Transmission Date: 20111222
  Serious: Yes (Death)
  Sender: FDA-Public Use
  Company Number: JP-PFIZER INC-2011182036

PATIENT
  Age: 66 Year
  Sex: Male
  Weight: 81 kg

DRUGS (7)
  1. AMLODIPINE BESILATE [Suspect]
     Indication: ESSENTIAL HYPERTENSION
     Dosage: UNK
     Route: 048
     Dates: start: 20110419, end: 20110613
  2. PLACEBO [Concomitant]
     Dosage: UNK
     Route: 048
     Dates: start: 20110614, end: 20110712
  3. AMARYL [Concomitant]
     Indication: DIABETES MELLITUS
     Dosage: 1 MG, 1X/DAY
     Route: 048
     Dates: start: 20110405
  4. SITAGLIPTIN PHOSPHATE [Concomitant]
     Indication: DIABETES MELLITUS
     Dosage: 75 MG, 1X/DAY
     Route: 048
     Dates: start: 20110104
  5. LOSARTAN [Suspect]
     Indication: ESSENTIAL HYPERTENSION
     Dosage: UNK
     Route: 048
     Dates: start: 20110419, end: 20110613
  6. AMLODIPINE BESILATE [Suspect]
     Dosage: UNK
     Route: 048
     Dates: start: 20110614, end: 20110712
  7. LOSARTAN [Suspect]
     Dosage: UNK
     Route: 048
     Dates: start: 20110614, end: 20110712

REACTIONS (1)
  - CARDIAC DEATH [None]
